FAERS Safety Report 20684237 (Version 1)
Quarter: 2022Q2

REPORT INFORMATION
  Report Type: Spontaneous
  Country: US (occurrence: None)
  Receive Date: 20220405
  Receipt Date: 20220405
  Transmission Date: 20220721
  Serious: Yes (Death)
  Sender: FDA-Public Use
  Company Number: None

PATIENT
  Sex: Male

DRUGS (6)
  1. STELARA [Suspect]
     Active Substance: USTEKINUMAB
     Indication: Psoriasis
     Dosage: OTHER FREQUENCY : EVERY 3 MONTHS;?
     Route: 058
     Dates: start: 20200318, end: 202203
  2. STELARA [Suspect]
     Active Substance: USTEKINUMAB
     Dosage: OTHER QUANTITY : 1 SYRINGE;?OTHER FREQUENCY : EVERY 3 MONTHS;?
     Route: 058
  3. CLOBETSOL OIN [Concomitant]
  4. CLOBEX SHA [Concomitant]
  5. ENBREL SRCLK [Concomitant]
  6. SULFAMETHOXAZOLE\TRIMETHOPRIM [Concomitant]
     Active Substance: SULFAMETHOXAZOLE\TRIMETHOPRIM

REACTIONS (1)
  - Death [None]
